FAERS Safety Report 8507880-9 (Version None)
Quarter: 2012Q3

REPORT INFORMATION
  Report Type: 
  Country: None (occurrence: None)
  Receive Date: 20120709
  Receipt Date: 20120709
  Transmission Date: 20120928
  Serious: Yes (Other)
  Sender: FDA-Public Use
  Company Number: None

PATIENT
  Age: 41 Year
  Sex: Female
  Weight: 74.8435 kg

DRUGS (2)
  1. CLINDAMYCIN [Suspect]
     Indication: POSTOPERATIVE FEVER
     Dosage: 1 CAPSULE EVERY 6 HRS PO
     Route: 048
     Dates: start: 20120514, end: 20120524
  2. CLINDAMYCIN [Suspect]
     Indication: DENTAL OPERATION
     Dosage: 1 CAPSULE EVERY 6 HRS PO
     Route: 048
     Dates: start: 20120514, end: 20120524

REACTIONS (6)
  - CLOSTRIDIAL INFECTION [None]
  - DIARRHOEA [None]
  - GASTROINTESTINAL INFECTION [None]
  - INFERTILITY FEMALE [None]
  - MALAISE [None]
  - WHITE BLOOD CELLS STOOL POSITIVE [None]
